FAERS Safety Report 5906052-1 (Version None)
Quarter: 2008Q4

REPORT INFORMATION
  Report Type: 
  Country: None (occurrence: None)
  Receive Date: 20081002
  Receipt Date: 20080919
  Transmission Date: 20090506
  Serious: Yes (Death, Hospitalization, Other)
  Sender: FDA-Public Use
  Company Number: US-ELI_LILLY_AND_COMPANY-US200809004827

PATIENT
  Sex: Male

DRUGS (2)
  1. ZYPREXA [Suspect]
     Dosage: 7.5 MG, EACH EVENING
  2. ZYPREXA [Suspect]
     Dosage: 5 MG, EACH EVENING

REACTIONS (12)
  - ABASIA [None]
  - ASTHENIA [None]
  - ATRIAL FIBRILLATION [None]
  - DEATH [None]
  - DEMENTIA ALZHEIMER'S TYPE [None]
  - DYSKINESIA [None]
  - FALL [None]
  - HYDRONEPHROSIS [None]
  - HYPOTHYROIDISM [None]
  - LEUKOCYTOSIS [None]
  - NEUROLEPTIC MALIGNANT SYNDROME [None]
  - RHABDOMYOLYSIS [None]
